FAERS Safety Report 10436343 (Version 1)
Quarter: 2014Q3

REPORT INFORMATION
  Report Type: Spontaneous
  Country: CN (occurrence: CN)
  Receive Date: 20140908
  Receipt Date: 20140908
  Transmission Date: 20150326
  Serious: Yes (Other)
  Sender: FDA-Public Use
  Company Number: PHHY2014CN110363

PATIENT
  Age: 51 Year
  Sex: Male

DRUGS (3)
  1. TRIHEXYPHENIDYL [Concomitant]
     Active Substance: TRIHEXYPHENIDYL
     Dosage: 2 MG, BID
  2. ALPRAZOLAM. [Concomitant]
     Active Substance: ALPRAZOLAM
     Dosage: 0.4 MG, PER NIGHT
  3. OLANZAPINE. [Suspect]
     Active Substance: OLANZAPINE
     Dosage: 2.5 MG, PER NIGHT

REACTIONS (5)
  - Muscle tightness [Recovered/Resolved]
  - Trismus [Recovered/Resolved]
  - Paraesthesia [Recovered/Resolved]
  - Restless legs syndrome [Recovered/Resolved]
  - Eyelid disorder [Recovered/Resolved]
